FAERS Safety Report 7334283-5 (Version None)
Quarter: 2011Q1

REPORT INFORMATION
  Report Type: 
  Country: None (occurrence: None)
  Receive Date: 20110307
  Receipt Date: 20101201
  Transmission Date: 20110831
  Serious: No
  Sender: FDA-Public Use
  Company Number: US-BAYER-2010-006069

PATIENT
  Age: 36 Year
  Sex: Female

DRUGS (1)
  1. MIRENA [Suspect]
     Indication: CONTRACEPTION
     Dosage: UNK
     Dates: start: 20100915, end: 20101012

REACTIONS (2)
  - DEVICE EXPULSION [None]
  - MENORRHAGIA [None]
